FAERS Safety Report 14673250 (Version 2)
Quarter: 2018Q4

REPORT INFORMATION
  Report Type: Report from Study
  Country: FR (occurrence: FR)
  Receive Date: 20180323
  Receipt Date: 20181107
  Transmission Date: 20190204
  Serious: Yes (Death, Hospitalization, Other)
  Sender: FDA-Public Use
  Company Number: FR-JAZZ-2018-FR-004709

PATIENT
  Age: 37 Year
  Sex: Male
  Weight: 56 kg

DRUGS (1)
  1. DEFITELIO [Suspect]
     Active Substance: DEFIBROTIDE SODIUM
     Indication: VENOOCCLUSIVE DISEASE
     Dosage: 25 MG/KG, QD
     Dates: start: 20150723, end: 20150810

REACTIONS (2)
  - Enterococcal infection [Fatal]
  - Incorrect product administration duration [Unknown]

NARRATIVE: CASE EVENT DATE: 20150723
